FAERS Safety Report 8606779 (Version 3)
Quarter: 2014Q1

REPORT INFORMATION
  Report Type: Spontaneous
  Country: US (occurrence: US)
  Receive Date: 20120611
  Receipt Date: 20140108
  Transmission Date: 20141002
  Serious: Yes (Other)
  Sender: FDA-Public Use
  Company Number: US-ASTRAZENECA-2012SE36226

PATIENT
  Age: 18338 Day
  Sex: Male

DRUGS (17)
  1. NEXIUM [Suspect]
     Indication: GASTROOESOPHAGEAL REFLUX DISEASE
     Dosage: ONCE DAILY
     Route: 048
  2. NEXIUM [Suspect]
     Indication: GASTROOESOPHAGEAL REFLUX DISEASE
     Route: 048
     Dates: start: 20100920
  3. NEXIUM [Suspect]
     Indication: GASTROOESOPHAGEAL REFLUX DISEASE
     Route: 048
     Dates: start: 20101201
  4. NEXIUM [Suspect]
     Indication: GASTROOESOPHAGEAL REFLUX DISEASE
     Route: 048
     Dates: start: 20110124
  5. TAGAMET [Concomitant]
  6. PREVACID/ LANSOPRAZOLE [Concomitant]
  7. LORTAB [Concomitant]
     Indication: PAIN
     Dosage: 10 MG - 500 MG
  8. FENTANYL [Concomitant]
     Indication: PAIN
  9. ALLEGRA-D [Concomitant]
     Indication: HYPERSENSITIVITY
  10. BENTYL [Concomitant]
     Indication: GASTRIC DISORDER
  11. ASPIRIN [Concomitant]
     Indication: CARDIAC DISORDER
  12. NITROSTAT [Concomitant]
     Indication: CARDIAC DISORDER
  13. LACTULOSE [Concomitant]
     Indication: CONSTIPATION
  14. TRIAZOLAM [Concomitant]
     Indication: SLEEP DISORDER
  15. PREDNISONE [Concomitant]
     Dates: start: 20110708
  16. METHYLPREDNISOLONE [Concomitant]
     Dates: start: 20130315
  17. ETODOLAC [Concomitant]
     Dates: start: 20120507

REACTIONS (9)
  - Bone fragmentation [Unknown]
  - Rotator cuff syndrome [Unknown]
  - Osteoarthritis [Unknown]
  - Exostosis [Unknown]
  - Intervertebral disc disorder [Unknown]
  - Osteoporosis [Unknown]
  - Multiple fractures [Unknown]
  - Arthritis [Unknown]
  - Androgen deficiency [Unknown]
